FAERS Safety Report 24253384 (Version 1)
Quarter: 2024Q3

REPORT INFORMATION
  Report Type: Spontaneous
  Country: FR (occurrence: FR)
  Receive Date: 20240827
  Receipt Date: 20240827
  Transmission Date: 20241016
  Serious: Yes (Life-Threatening)
  Sender: RANBAXY
  Company Number: FR-AFSSAPS-PO2024000651

PATIENT
  Age: 91 Year
  Sex: Female

DRUGS (1)
  1. MORPHINE [Suspect]
     Active Substance: MORPHINE
     Indication: Pain
     Dosage: 6 MILLIGRAM, UNK
     Route: 040
     Dates: start: 20240521, end: 20240521

REACTIONS (3)
  - Drug monitoring procedure not performed [Recovered/Resolved]
  - Coma [Recovered/Resolved]
  - Accidental overdose [Recovered/Resolved]

NARRATIVE: CASE EVENT DATE: 20240521
